FAERS Safety Report 21796770 (Version 2)
Quarter: 2023Q2

REPORT INFORMATION
  Report Type: Spontaneous
  Country: US (occurrence: US)
  Receive Date: 20221230
  Receipt Date: 20230412
  Transmission Date: 20230722
  Serious: No
  Sender: FDA-Public Use
  Company Number: US-SUNOVION-2022SUN003508AA

PATIENT
  Sex: Female
  Weight: 69.388 kg

DRUGS (12)
  1. LATUDA [Suspect]
     Active Substance: LURASIDONE HYDROCHLORIDE
     Indication: Bipolar disorder
     Dosage: 20 MG
     Route: 048
     Dates: start: 20210928
  2. LATUDA [Suspect]
     Active Substance: LURASIDONE HYDROCHLORIDE
     Dosage: 10 MG (TOOK HALF OF A LATUDA 20MG)
     Route: 048
     Dates: start: 20221218
  3. VITAMIN C [Concomitant]
     Active Substance: ASCORBIC ACID
     Dosage: UNK
     Route: 048
  4. VITAMIN B12 [Concomitant]
     Active Substance: CYANOCOBALAMIN
     Dosage: 100 ?G, BID
     Route: 048
  5. HERBALS\TURMERIC [Concomitant]
     Active Substance: HERBALS\TURMERIC
     Dosage: ONE DAILY
     Route: 048
  6. LYSINE HCL [Concomitant]
     Dosage: 500 MG, QD
     Route: 048
  7. BACLOFEN [Concomitant]
     Active Substance: BACLOFEN
     Dosage: 10 MG, BID
     Route: 048
  8. DICLOFENAC SODIUM [Concomitant]
     Active Substance: DICLOFENAC SODIUM
     Dosage: 2000 MG, FOUR TIMES DAILY AS NEEDED TO AFFECTED AREA
     Route: 061
     Dates: start: 20221215
  9. DAILY-VITE [Concomitant]
     Dosage: 400 ?G, QD
     Route: 048
     Dates: start: 20220921
  10. VALACYCLOVIR [Concomitant]
     Active Substance: VALACYCLOVIR HYDROCHLORIDE
     Indication: Oral herpes
     Dosage: 2000 MG, BID AT ONSET OF COLD SORES
     Route: 048
     Dates: start: 20220524
  11. ACYCLOVIR [Concomitant]
     Active Substance: ACYCLOVIR
     Indication: Oral herpes
     Dosage: UNK, 5 TIMES DAILY X 4 DAYS
     Route: 061
     Dates: start: 20220526
  12. WELLBUTRIN XL [Concomitant]
     Active Substance: BUPROPION HYDROCHLORIDE
     Dosage: 300 MG, QD
     Route: 048
     Dates: start: 20220524

REACTIONS (9)
  - Catarrh [Recovered/Resolved]
  - Feeling abnormal [Recovered/Resolved]
  - Pharyngeal swelling [Recovered/Resolved]
  - Gastrooesophageal reflux disease [Recovered/Resolved]
  - Dysphagia [Recovered/Resolved]
  - Rhinorrhoea [Recovered/Resolved]
  - Product dose omission issue [Unknown]
  - Intentional underdose [Unknown]
  - Treatment noncompliance [Unknown]
